FAERS Safety Report 8200842-0 (Version None)
Quarter: 2012Q1

REPORT INFORMATION
  Report Type: 
  Country: None (occurrence: None)
  Receive Date: 20120306
  Receipt Date: 20120221
  Transmission Date: 20120608
  Serious: Yes (Other)
  Sender: FDA-Public Use
  Company Number: FK201200566

PATIENT
  Sex: Female

DRUGS (2)
  1. PACLITAXEL [Suspect]
     Indication: OVARIAN CANCER
     Dosage: 175 MG /M2
  2. CARBOPLATIN [Suspect]
     Indication: OVARIAN CANCER
     Dosage: AREA UNDER THE CURVE 6

REACTIONS (7)
  - PANCYTOPENIA [None]
  - ASTHENIA [None]
  - DYSPNOEA [None]
  - ACUTE MYELOID LEUKAEMIA [None]
  - FATIGUE [None]
  - DIZZINESS [None]
  - EPISTAXIS [None]
